FAERS Safety Report 9917842 (Version 3)
Quarter: 2014Q2

REPORT INFORMATION
  Report Type: Spontaneous
  Country: US (occurrence: US)
  Receive Date: 20140221
  Receipt Date: 20140425
  Transmission Date: 20141212
  Serious: Yes (Death)
  Sender: FDA-Public Use
  Company Number: US-GLAXOSMITHKLINE-A1061000A

PATIENT
  Age: 36 Year
  Sex: Female

DRUGS (3)
  1. VOTRIENT [Suspect]
     Indication: SOFT TISSUE SARCOMA
     Dosage: 800MG PER DAY
     Route: 048
     Dates: start: 20131203
  2. OXYCONTIN [Concomitant]
  3. ZOLOFT [Concomitant]

REACTIONS (2)
  - Death [Fatal]
  - Off label use [Unknown]
